FAERS Safety Report 5528623-7 (Version None)
Quarter: 2007Q4

REPORT INFORMATION
  Report Type: 
  Country: None (occurrence: None)
  Receive Date: 20071109
  Receipt Date: 20070327
  Transmission Date: 20080405
  Serious: Yes (Other)
  Sender: FDA-Public Use
  Company Number: PHEH2007US03628

PATIENT
  Age: 52 Year
  Sex: Female
  Weight: 65.8 kg

DRUGS (9)
  1. ESTRADERM [Suspect]
     Indication: MENOPAUSAL SYMPTOMS
     Dosage: BIW, TOPICAL
     Route: 061
     Dates: start: 19970920, end: 19990101
  2. PREMPRO [Suspect]
     Indication: MENOPAUSAL SYMPTOMS
     Dosage: 0.625/2.5MG, QD, ORAL
     Route: 048
     Dates: start: 19990101, end: 20010401
  3. ADRIAMYCIN PFS [Concomitant]
  4. CYTOXAN [Concomitant]
  5. TAMOXIFEN CITRATE [Concomitant]
  6. LOPRESSOR [Concomitant]
  7. PROZAC [Concomitant]
  8. CELEXA [Concomitant]
  9. FEMARA [Concomitant]

REACTIONS (17)
  - BACK PAIN [None]
  - BREAST CANCER [None]
  - BREAST COSMETIC SURGERY [None]
  - BREAST DISORDER [None]
  - BREAST RECONSTRUCTION [None]
  - DEPRESSION [None]
  - FIBROSIS [None]
  - HOT FLUSH [None]
  - HYPERTENSION [None]
  - LEUKOPENIA [None]
  - LYMPHADENECTOMY [None]
  - LYMPHOEDEMA [None]
  - METASTATIC NEOPLASM [None]
  - MODIFIED RADICAL MASTECTOMY [None]
  - NECK PAIN [None]
  - PALPITATIONS [None]
  - RADIOTHERAPY [None]
